FAERS Safety Report 10623395 (Version 9)
Quarter: 2015Q4

REPORT INFORMATION
  Report Type: Spontaneous
  Country: US (occurrence: US)
  Receive Date: 20141203
  Receipt Date: 20151021
  Transmission Date: 20160304
  Serious: Yes (Hospitalization, Disabling)
  Sender: FDA-Public Use
  Company Number: US-009507513-1204USA04500

PATIENT
  Sex: Male
  Weight: 82.99 kg

DRUGS (1)
  1. PROPECIA [Suspect]
     Active Substance: FINASTERIDE
     Indication: ALOPECIA
     Dosage: 1 MG, QD
     Route: 048
     Dates: start: 200908, end: 201102

REACTIONS (56)
  - Erectile dysfunction [Not Recovered/Not Resolved]
  - Depression [Not Recovered/Not Resolved]
  - Exercise tolerance decreased [Unknown]
  - Heart rate increased [Unknown]
  - Skin papilloma [Unknown]
  - Joint range of motion decreased [Unknown]
  - Grip strength decreased [Unknown]
  - Musculoskeletal disorder [Unknown]
  - Muscle strain [Unknown]
  - Semen viscosity decreased [Unknown]
  - Drug ineffective [Unknown]
  - Depression [Unknown]
  - Erectile dysfunction [Unknown]
  - Libido decreased [Not Recovered/Not Resolved]
  - Adverse event [Unknown]
  - Dry eye [Unknown]
  - Peyronie^s disease [Unknown]
  - Dry skin [Unknown]
  - Alopecia [Unknown]
  - Oral surgery [Unknown]
  - Genital hypoaesthesia [Unknown]
  - Arthropathy [Unknown]
  - Posture abnormal [Unknown]
  - Arthralgia [Unknown]
  - Fracture [Unknown]
  - Feeling jittery [Unknown]
  - Tonsillectomy [Unknown]
  - Seborrhoeic dermatitis [Unknown]
  - Skin papilloma [Unknown]
  - Peripheral coldness [Unknown]
  - Thyroid disorder [Unknown]
  - Headache [Unknown]
  - Adhesion [Unknown]
  - Feeling hot [Unknown]
  - Breast disorder male [Unknown]
  - Melanocytic naevus [Unknown]
  - Sexual dysfunction [Not Recovered/Not Resolved]
  - Fatigue [Unknown]
  - Genital hypoaesthesia [Unknown]
  - Chest pain [Unknown]
  - Dyspareunia [Unknown]
  - Myofascial pain syndrome [Unknown]
  - Sinusitis [Unknown]
  - Anorgasmia [Unknown]
  - Cognitive disorder [Recovering/Resolving]
  - Ejaculation disorder [Not Recovered/Not Resolved]
  - Weight increased [Unknown]
  - Bone disorder [Unknown]
  - Drug ineffective [Unknown]
  - Anxiety [Not Recovered/Not Resolved]
  - Pleurisy [Unknown]
  - Ejaculation failure [Not Recovered/Not Resolved]
  - Dysarthria [Unknown]
  - Thirst [Unknown]
  - Diffuse alopecia [Unknown]
  - Activities of daily living impaired [Unknown]

NARRATIVE: CASE EVENT DATE: 2010
